FAERS Safety Report 6122293-5 (Version None)
Quarter: 2009Q1

REPORT INFORMATION
  Report Type: 
  Country: None (occurrence: None)
  Receive Date: 20090316
  Receipt Date: 20090304
  Transmission Date: 20090719
  Serious: Yes (Life-Threatening, Hospitalization)
  Sender: FDA-Public Use
  Company Number: ADE2009-0476

PATIENT
  Age: 50 Year
  Sex: Male

DRUGS (3)
  1. AMLODIPINE [Suspect]
     Indication: ANGINA PECTORIS
     Dosage: 1 TABLET - QD - ORAL
     Route: 048
  2. ATENOLOL [Suspect]
     Indication: ANGINA PECTORIS
     Dosage: 1 TABLET - QD - ORAL
     Route: 048
  3. ARTHROTEC [Suspect]
     Indication: OSTEOARTHRITIS
     Dosage: 75MG - QD

REACTIONS (17)
  - ATRIOVENTRICULAR BLOCK COMPLETE [None]
  - BACK PAIN [None]
  - BRADYCARDIA [None]
  - CARDIOGENIC SHOCK [None]
  - CIRCULATORY COLLAPSE [None]
  - DIZZINESS [None]
  - GENERAL PHYSICAL HEALTH DETERIORATION [None]
  - HAEMODIALYSIS [None]
  - HYPERGLYCAEMIA [None]
  - HYPERKALAEMIA [None]
  - LARYNGEAL OEDEMA [None]
  - LIVER INJURY [None]
  - METABOLIC ACIDOSIS [None]
  - RENAL FAILURE ACUTE [None]
  - THERAPEUTIC AGENT TOXICITY [None]
  - TREATMENT FAILURE [None]
  - UNRESPONSIVE TO STIMULI [None]
